FAERS Safety Report 10697449 (Version 1)
Quarter: 2015Q1

REPORT INFORMATION
  Report Type: Spontaneous
  Country: DE (occurrence: SE)
  Receive Date: 20150108
  Receipt Date: 20150108
  Transmission Date: 20150721
  Serious: Yes (Death)
  Sender: FDA-Public Use
  Company Number: SE-FRI-1000073402

PATIENT
  Age: 78 Year
  Sex: Female

DRUGS (4)
  1. SOBRIL [Concomitant]
     Active Substance: OXAZEPAM
  2. MEMANTINE ORAL SOLUTION [Suspect]
     Active Substance: MEMANTINE
     Indication: DEMENTIA ALZHEIMER^S TYPE
     Dosage: 20 MG
     Route: 048
     Dates: start: 20140102, end: 20140618
  3. LAXOBERAL [Concomitant]
     Active Substance: SODIUM PICOSULFATE
  4. MOVICOL [Concomitant]
     Active Substance: POLYETHYLENE GLYCOL 3350\POTASSIUM CHLORIDE\SODIUM BICARBONATE\SODIUM CHLORIDE

REACTIONS (2)
  - Epilepsy [Fatal]
  - Muscle spasms [Fatal]

NARRATIVE: CASE EVENT DATE: 20140616
